FAERS Safety Report 6237513-6 (Version None)
Quarter: 2009Q2

REPORT INFORMATION
  Report Type: 
  Country: None (occurrence: None)
  Receive Date: 20090619
  Receipt Date: 20090325
  Transmission Date: 20091009
  Serious: No
  Sender: FDA-Public Use
  Company Number: US-AMGEN-KDL340214

PATIENT
  Sex: Male

DRUGS (15)
  1. ARANESP [Suspect]
     Indication: RENAL FAILURE CHRONIC
  2. EPOGEN [Suspect]
     Indication: RENAL FAILURE CHRONIC
  3. ASPIRIN [Concomitant]
  4. PRAVASTATIN [Concomitant]
  5. RAMIPRIL [Concomitant]
  6. NITROGLYCERIN [Concomitant]
  7. PROSCAR [Concomitant]
  8. CARDURA [Concomitant]
  9. NIACIN [Concomitant]
  10. UNSPECIFIED OPHTHALMIC PREPARATION [Concomitant]
  11. NEXIUM [Concomitant]
  12. PROSCAR [Concomitant]
  13. VITAMIN D [Concomitant]
  14. NEPHROCAPS [Concomitant]
  15. HYDROCHLOROTHIAZIDE [Concomitant]

REACTIONS (2)
  - PLATELET COUNT DECREASED [None]
  - RED BLOOD CELL COUNT DECREASED [None]
